FAERS Safety Report 9524096 (Version 4)
Quarter: 2013Q4

REPORT INFORMATION
  Report Type: Spontaneous
  Country: FR (occurrence: None)
  Receive Date: 20130912
  Receipt Date: 20131025
  Transmission Date: 20140711
  Serious: Yes (Hospitalization)
  Sender: FDA-Public Use
  Company Number: 2013-1461

PATIENT
  Age: 86 Year
  Sex: Female

DRUGS (8)
  1. CARFILZOMIB [Suspect]
     Indication: PLASMA CELL MYELOMA
     Dosage: 30 MG, DAYS, 1, 2, INTRAVENOUS
     Route: 042
     Dates: start: 20130429, end: 20130430
  2. DEXAMETHASONE [Suspect]
     Indication: PLASMA CELL MYELOMA
     Dosage: 20 MG, DAYS 1,2,8,9,15,16,22,23 EVERY 28 DAYS, ORAL
     Route: 048
     Dates: start: 20130429, end: 20130701
  3. TAHOR (ATORVASTATIN CALCIUM) (ATORVASTATIN CALCIUM) [Concomitant]
  4. INEXIUM (ESOMEPRAZOLE MAGNSESIUM) (ESOMEPRAZOLE MAGNESIUM) [Concomitant]
  5. KYTRIL (GRANISETRON HYROCHLORIDE) (GRANISETRON HYDROCHLORIDE) [Concomitant]
  6. ZELITREX (VALACICLOVIR HYDROCHLORIDE (VALACICLOVIR HYDROCHLORIDE) [Concomitant]
  7. ZOMETA (ZOLEDRONIC ACID) (ZOLEDRONIC ACID) [Concomitant]
  8. DUPHALAC (LACTULOSE) (LACTULOSE) (LACTULOSE) [Concomitant]

REACTIONS (3)
  - Colitis [None]
  - Diverticulum intestinal [None]
  - Pancreatitis [None]
